FAERS Safety Report 7489451-9 (Version None)
Quarter: 2011Q2

REPORT INFORMATION
  Report Type: 
  Country: None (occurrence: None)
  Receive Date: 20110518
  Receipt Date: 20110511
  Transmission Date: 20111010
  Serious: Yes (Hospitalization, Other)
  Sender: FDA-Public Use
  Company Number: US-US-EMD SERONO, INC.-7015476

PATIENT
  Sex: Female
  Weight: 127 kg

DRUGS (8)
  1. REBIF [Suspect]
     Indication: MULTIPLE SCLEROSIS
     Route: 058
     Dates: start: 20080506
  2. ALTMED [Concomitant]
     Indication: MIGRAINE
  3. BACLOFEN [Concomitant]
     Indication: MULTIPLE SCLEROSIS
  4. CYMBALTA [Concomitant]
     Indication: DEPRESSION
  5. LYRICA [Concomitant]
     Indication: MULTIPLE SCLEROSIS
  6. CYMBALTA [Concomitant]
     Indication: PAIN
  7. MAXALT [Concomitant]
     Indication: MIGRAINE
  8. UNSPECIFIED MEDICATIONS [Concomitant]

REACTIONS (13)
  - SYSTEMIC LUPUS ERYTHEMATOSUS [None]
  - OVARIAN CYST [None]
  - MUSCLE SPASMS [None]
  - BURNING SENSATION [None]
  - PANCREATITIS [None]
  - INJECTION SITE SCAR [None]
  - PAIN IN EXTREMITY [None]
  - RASH PAPULAR [None]
  - ABDOMINAL OPERATION [None]
  - CROHN'S DISEASE [None]
  - INJECTION SITE PAIN [None]
  - MUSCLE SPASTICITY [None]
  - INJECTION SITE ERYTHEMA [None]
